FAERS Safety Report 20862520 (Version 1)
Quarter: 2022Q2

REPORT INFORMATION
  Report Type: Spontaneous
  Country: CA (occurrence: CA)
  Receive Date: 20220523
  Receipt Date: 20220523
  Transmission Date: 20220721
  Serious: Yes (Hospitalization)
  Sender: FDA-Public Use
  Company Number: CA-BAUSCH-BL-2022-012248

PATIENT
  Age: 52 Year
  Sex: Male

DRUGS (10)
  1. BESIVANCE [Suspect]
     Active Substance: BESIFLOXACIN
     Indication: Product used for unknown indication
     Route: 065
  2. AMLODIPINE BESYLATE [Suspect]
     Active Substance: AMLODIPINE BESYLATE
     Indication: Hypertension
     Route: 065
  3. BETAXOLOL [Suspect]
     Active Substance: BETAXOLOL
     Indication: Product used for unknown indication
     Dosage: NOT SPECIFIED
     Route: 065
  4. CIALIS [Suspect]
     Active Substance: TADALAFIL
     Indication: Product used for unknown indication
     Route: 065
  5. EPIPEN JR [Suspect]
     Active Substance: EPINEPHRINE
     Indication: Drug hypersensitivity
     Route: 030
  6. MOXIFLOXACIN [Suspect]
     Active Substance: MOXIFLOXACIN
     Indication: Product used for unknown indication
     Dosage: NOT SPECIFIED
     Route: 065
  7. NASONEX [Suspect]
     Active Substance: MOMETASONE FUROATE
     Indication: Product used for unknown indication
     Dosage: SPRAY, METERED DOSE
     Route: 065
  8. OLOPATADINE [Suspect]
     Active Substance: OLOPATADINE
     Indication: Product used for unknown indication
     Dosage: NOT SPECIFIED
     Route: 065
  9. PREDNISOLONE SODIUM PHOSPHATE [Suspect]
     Active Substance: PREDNISOLONE SODIUM PHOSPHATE
     Indication: Product used for unknown indication
     Route: 065
  10. PREDNISONE ACETATE [Suspect]
     Active Substance: PREDNISONE ACETATE
     Indication: Product used for unknown indication
     Route: 065

REACTIONS (1)
  - Hypersensitivity [Recovered/Resolved]
